FAERS Safety Report 17658943 (Version 2)
Quarter: 2022Q1

REPORT INFORMATION
  Report Type: Report from Study
  Country: BR (occurrence: BR)
  Receive Date: 20200413
  Receipt Date: 20220301
  Transmission Date: 20220423
  Serious: Yes (Hospitalization, Other)
  Sender: FDA-Public Use
  Company Number: BR-ABBVIE-20K-020-3358560-00

PATIENT
  Sex: Female
  Weight: 100 kg

DRUGS (9)
  1. HUMIRA [Suspect]
     Active Substance: ADALIMUMAB
     Indication: Crohn^s disease
     Dosage: ONE UNSPECIFIED DOSE
     Route: 058
     Dates: start: 20100101
  2. HUMIRA [Suspect]
     Active Substance: ADALIMUMAB
     Dosage: LOADING DOSE?UNSPECIFIED DOSE
     Route: 058
  3. HUMIRA [Suspect]
     Active Substance: ADALIMUMAB
     Dosage: ONE UNSPECIFIED DOSE
     Route: 058
  4. HUMIRA [Suspect]
     Active Substance: ADALIMUMAB
     Route: 058
     Dates: start: 20220126
  5. AZATHIOPRINE [Concomitant]
     Active Substance: AZATHIOPRINE
     Indication: Product used for unknown indication
     Dates: start: 202111
  6. PATANOL [Concomitant]
     Active Substance: OLOPATADINE HYDROCHLORIDE
     Indication: Conjunctivitis allergic
     Route: 061
     Dates: start: 2012
  7. TRAMADOL [Concomitant]
     Active Substance: TRAMADOL
     Indication: Migraine
     Dosage: 4 TO 6 PILLS FOR MIGRAINE CRISES?USUALLY ONE TO TWO PILLS PER DAY
     Route: 048
  8. CYCLOBENZAPRINE [Concomitant]
     Active Substance: CYCLOBENZAPRINE
     Indication: Migraine
     Route: 048
     Dates: start: 2015
  9. NARATRIPTAN [Concomitant]
     Active Substance: NARATRIPTAN HYDROCHLORIDE
     Indication: Migraine
     Route: 048
     Dates: start: 202112

REACTIONS (37)
  - Ileectomy [Recovered/Resolved]
  - Intestinal obstruction [Recovered/Resolved]
  - Intestinal perforation [Recovered/Resolved]
  - Gastrointestinal infection [Recovered/Resolved]
  - Dyspnoea [Unknown]
  - Gastrointestinal procedural complication [Recovered/Resolved]
  - Fistula of small intestine [Recovered/Resolved]
  - Intestinal stenosis [Unknown]
  - Gastrointestinal inflammation [Unknown]
  - Pyrexia [Unknown]
  - Postoperative wound infection [Recovered/Resolved]
  - Purulent discharge [Recovered/Resolved]
  - Abdominal abscess [Unknown]
  - Crohn^s disease [Recovering/Resolving]
  - Hypersensitivity [Recovering/Resolving]
  - Arthralgia [Recovering/Resolving]
  - Pleural effusion [Unknown]
  - Fistula [Recovering/Resolving]
  - Inflammation [Not Recovered/Not Resolved]
  - Somnolence [Not Recovered/Not Resolved]
  - Impaired work ability [Not Recovered/Not Resolved]
  - Burning sensation [Recovered/Resolved]
  - Metabolic surgery [Recovered/Resolved]
  - Insomnia [Not Recovered/Not Resolved]
  - Panic attack [Not Recovered/Not Resolved]
  - Malaise [Unknown]
  - Migraine [Not Recovered/Not Resolved]
  - Enterocutaneous fistula [Not Recovered/Not Resolved]
  - Cholecystectomy [Unknown]
  - Cholelithiasis [Unknown]
  - Cholecystitis chronic [Unknown]
  - Liver disorder [Unknown]
  - Incision site pain [Not Recovered/Not Resolved]
  - Hepatic cyst [Unknown]
  - Gingival cyst [Unknown]
  - Dermal cyst [Unknown]
  - Intestinal perforation [Not Recovered/Not Resolved]

NARRATIVE: CASE EVENT DATE: 20100101
